FAERS Safety Report 9144980 (Version 2)
Quarter: 2013Q2

REPORT INFORMATION
  Report Type: Spontaneous
  Country: US (occurrence: US)
  Receive Date: 20130307
  Receipt Date: 20130408
  Transmission Date: 20140414
  Serious: Yes (Other)
  Sender: FDA-Public Use
  Company Number: US-BIOGENIDEC-2013BI019000

PATIENT
  Age: 62 Year
  Sex: Female

DRUGS (1)
  1. TYSABRI [Suspect]
     Indication: MULTIPLE SCLEROSIS
     Route: 042
     Dates: start: 20120627, end: 20121217

REACTIONS (6)
  - Autoimmune hepatitis [Not Recovered/Not Resolved]
  - Procedural pain [Recovered/Resolved]
  - Arthralgia [Unknown]
  - Burning sensation [Unknown]
  - Fatigue [Recovered/Resolved]
  - Pain in extremity [Unknown]
